FAERS Safety Report 18916412 (Version 1)
Quarter: 2021Q1

REPORT INFORMATION
  Report Type: Spontaneous
  Country: US (occurrence: US)
  Receive Date: 20210213
  Receipt Date: 20210213
  Transmission Date: 20210420
  Serious: Yes (Hospitalization)
  Sender: FDA-Public Use
  Company Number: None

PATIENT
  Age: 3 Year
  Sex: Female
  Weight: 18.5 kg

DRUGS (1)
  1. CANNABURST THC GUMMY SOURS [Suspect]
     Active Substance: .DELTA.8-TETRAHYDROCANNABINOL\HERBALS
     Dosage: ?          OTHER FREQUENCY:UNK QTY INGESTED;?
     Route: 048
     Dates: start: 20210213, end: 20210213

REACTIONS (2)
  - Accidental exposure to product packaging by child [None]
  - Vomiting [None]

NARRATIVE: CASE EVENT DATE: 20210213
